FAERS Safety Report 5377825-1 (Version None)
Quarter: 2007Q3

REPORT INFORMATION
  Report Type: 
  Country: None (occurrence: None)
  Receive Date: 20070703
  Receipt Date: 20070622
  Transmission Date: 20080115
  Serious: Yes (Death, Hospitalization, Other)
  Sender: FDA-Public Use
  Company Number: US-PFIZER INC-2007052689

PATIENT
  Age: 32 Year
  Sex: Female
  Weight: 95.3 kg

DRUGS (2)
  1. CHANTIX [Suspect]
     Indication: EX-SMOKER
     Dates: start: 20070416, end: 20070608
  2. DEPO-PROVERA SUSPENSION/INJ [Suspect]

REACTIONS (9)
  - DEATH [None]
  - DRUG WITHDRAWAL SYNDROME [None]
  - HEADACHE [None]
  - IDIOPATHIC THROMBOCYTOPENIC PURPURA [None]
  - INTRACRANIAL ANEURYSM [None]
  - LOSS OF CONSCIOUSNESS [None]
  - NAUSEA [None]
  - PETECHIAE [None]
  - VOMITING [None]
